FAERS Safety Report 25929037 (Version 2)
Quarter: 2025Q4

REPORT INFORMATION
  Report Type: Spontaneous
  Country: CA (occurrence: CA)
  Receive Date: 20251016
  Receipt Date: 20251111
  Transmission Date: 20260117
  Serious: Yes (Other)
  Sender: ACCORD
  Company Number: None

PATIENT
  Age: 86 Year
  Sex: Female

DRUGS (3)
  1. HYDROXYCHLOROQUINE [Suspect]
     Active Substance: HYDROXYCHLOROQUINE
     Indication: Rheumatoid arthritis
     Dosage: 1 EVERY 1 DAY
  2. PREDNISONE [Suspect]
     Active Substance: PREDNISONE
     Indication: Product used for unknown indication
     Dosage: 1 EVERY 1 DAY
  3. HYDROXYCHLOROQUINE [Suspect]
     Active Substance: HYDROXYCHLOROQUINE
     Indication: Rheumatoid arthritis
     Dosage: 1 EVERY .5 DAY

REACTIONS (8)
  - Cushingoid [Recovering/Resolving]
  - Gait inability [Recovering/Resolving]
  - Myopathy toxic [Recovering/Resolving]
  - Contusion [Recovering/Resolving]
  - Hypoaesthesia [Recovering/Resolving]
  - Skin hyperpigmentation [Recovering/Resolving]
  - Muscular weakness [Recovering/Resolving]
  - Myopathy [Recovering/Resolving]
